FAERS Safety Report 15978074 (Version 2)
Quarter: 2019Q2

REPORT INFORMATION
  Report Type: Spontaneous
  Country: US (occurrence: US)
  Receive Date: 20190218
  Receipt Date: 20190517
  Transmission Date: 20190711
  Serious: No
  Sender: FDA-Public Use
  Company Number: US-SA-2019SA043384

PATIENT
  Age: 12 Year
  Sex: Male

DRUGS (5)
  1. DUPIXENT [Suspect]
     Active Substance: DUPILUMAB
     Indication: DERMATITIS ATOPIC
     Dosage: 600 MG, QOW
     Route: 058
     Dates: start: 20190115
  2. FOLIC ACID. [Concomitant]
     Active Substance: FOLIC ACID
  3. HYDROXYZINE [Concomitant]
     Active Substance: HYDROXYZINE HYDROCHLORIDE
  4. PREDNISONE. [Concomitant]
     Active Substance: PREDNISONE
  5. TACROLIMUS. [Concomitant]
     Active Substance: TACROLIMUS

REACTIONS (3)
  - Rash [Unknown]
  - Product use issue [Unknown]
  - Erythema [Not Recovered/Not Resolved]
